FAERS Safety Report 22253165 (Version 3)
Quarter: 2023Q4

REPORT INFORMATION
  Report Type: Other
  Country: DE (occurrence: None)
  Receive Date: 20230426
  Receipt Date: 20231212
  Transmission Date: 20240109
  Serious: No
  Sender: FDA-Public Use
  Company Number: DE-ROCHE-3336849

PATIENT
  Age: 48 Year
  Sex: Female
  Weight: 62 kg

DRUGS (2)
  1. OCREVUS [Suspect]
     Active Substance: OCRELIZUMAB
     Indication: Primary progressive multiple sclerosis
     Route: 042
     Dates: start: 20210526, end: 20210608
  2. OCREVUS [Suspect]
     Active Substance: OCRELIZUMAB
     Route: 042
     Dates: start: 20220510

REACTIONS (2)
  - Aphthous ulcer [Recovered/Resolved]
  - COVID-19 [Recovered/Resolved]

NARRATIVE: CASE EVENT DATE: 20221001
